FAERS Safety Report 13660322 (Version 1)
Quarter: 2017Q2

REPORT INFORMATION
  Report Type: Spontaneous
  Country: FR (occurrence: FR)
  Receive Date: 20170616
  Receipt Date: 20170616
  Transmission Date: 20170830
  Serious: Yes (Hospitalization)
  Sender: FDA-Public Use
  Company Number: FR-PFIZER INC-2017254869

PATIENT
  Age: 95 Year
  Sex: Female

DRUGS (15)
  1. MEDIATENSYL /00631801/ [Concomitant]
     Active Substance: URAPIDIL
     Dosage: 60 MG, DAILY
  2. KALEORID [Concomitant]
     Active Substance: POTASSIUM CHLORIDE
     Dosage: 1000 MG, DAILY
  3. LEVOTHYROX [Concomitant]
     Active Substance: LEVOTHYROXINE
     Dosage: 125 UG, DAILY
  4. ZELITREX [Concomitant]
     Active Substance: VALACYCLOVIR HYDROCHLORIDE
     Dosage: 1 DF, 2X/DAY
  5. SERETIDE [Concomitant]
     Active Substance: FLUTICASONE PROPIONATE\SALMETEROL XINAFOATE
     Dosage: 1 DF, DAILY
  6. INEXIUM /01479302/ [Concomitant]
     Active Substance: ESOMEPRAZOLE MAGNESIUM
     Dosage: 20 MG, DAILY
     Dates: start: 20170504, end: 20170522
  7. BRICANYL [Concomitant]
     Active Substance: TERBUTALINE SULFATE
     Dosage: 3 DF, DAILY
     Dates: start: 20170504, end: 20170523
  8. DAFLON /01026201/ [Concomitant]
     Active Substance: DIOSMIN\HESPERIDIN
     Dosage: 1 DF, 2X/DAY
  9. AUGMENTIN [Concomitant]
     Active Substance: AMOXICILLIN\CLAVULANATE POTASSIUM
     Dosage: UNK
     Dates: start: 20170504, end: 20170509
  10. BURINEX [Concomitant]
     Active Substance: BUMETANIDE
     Dosage: 5 MG, DAILY
  11. NEURONTIN [Suspect]
     Active Substance: GABAPENTIN
     Indication: OPHTHALMIC HERPES ZOSTER
     Dosage: 300 MG, 3X/DAY
     Route: 048
     Dates: start: 20170510, end: 20170522
  12. MAG 2 /00454301/ [Concomitant]
     Active Substance: MAGNESIUM CARBONATE
     Dosage: 100 MG, DAILY
  13. COZAAR [Concomitant]
     Active Substance: LOSARTAN POTASSIUM
     Dosage: 1 DF, DAILY
  14. VIRGAN [Concomitant]
     Active Substance: GANCICLOVIR
     Dosage: 2 GTT, 4X/DAY
  15. TOBRADEX [Concomitant]
     Active Substance: DEXAMETHASONE\TOBRAMYCIN
     Dosage: 1 GTT, 4X/DAY

REACTIONS (1)
  - Encephalopathy [Not Recovered/Not Resolved]

NARRATIVE: CASE EVENT DATE: 20170522
